FAERS Safety Report 4683140-1 (Version None)
Quarter: 2005Q2

REPORT INFORMATION
  Report Type: 
  Country: None (occurrence: None)
  Receive Date: 20050602
  Receipt Date: 20050331
  Transmission Date: 20051028
  Serious: No
  Sender: FDA-Public Use
  Company Number: USA050394575

PATIENT
  Age: 55 Year
  Sex: Female

DRUGS (3)
  1. CYMBALTA [Suspect]
     Indication: FIBROMYALGIA
     Dosage: 30 MG IN THE MORNING
     Dates: start: 20050331
  2. CELEXA [Concomitant]
  3. ACIPH (RABEPRAZOLE SODIUM) [Concomitant]

REACTIONS (1)
  - SENSORY DISTURBANCE [None]
